FAERS Safety Report 8865613 (Version 1)
Quarter: 2012Q4

REPORT INFORMATION
  Report Type: 
  Country: US (occurrence: US)
  Receive Date: 20121024
  Receipt Date: 20121024
  Transmission Date: 20130627
  Serious: No
  Sender: FDA-Public Use
  Company Number: US-AMGEN-USASP2012004016

PATIENT
  Age: 54 Year
  Sex: Female
  Weight: 82.99 kg

DRUGS (13)
  1. ENBREL [Suspect]
     Indication: PRODUCT USED FOR UNKNOWN INDICATION
     Dosage: 50 mg, qwk
     Route: 058
  2. LEVOXYL [Concomitant]
     Dosage: UNK
  3. LANTUS [Concomitant]
     Dosage: 100 ml, UNK
  4. NOVOLOG [Concomitant]
     Dosage: 100 ml, UNK
  5. ATENOLOL [Concomitant]
     Dosage: 25 mg, UNK
  6. LIPITOR [Concomitant]
     Dosage: 10 mg, UNK
  7. MULTIVITAMIN                       /00097801/ [Concomitant]
     Dosage: UNK
  8. FISH OIL [Concomitant]
     Dosage: UNK
  9. ASPIRIN (E.C.) [Concomitant]
     Dosage: 81 mg, UNK
  10. DICLOFENAC [Concomitant]
     Dosage: 50 mg, UNK
  11. HYDROXYCHLOROQUINE [Concomitant]
     Dosage: 200 mg, UNK
  12. METHOTREXATE [Concomitant]
     Dosage: 2.5 mg, UNK
  13. FOLIC ACID [Concomitant]
     Dosage: UNK

REACTIONS (1)
  - Upper respiratory tract infection [Unknown]
